FAERS Safety Report 11023431 (Version 11)
Quarter: 2017Q3

REPORT INFORMATION
  Report Type: Spontaneous
  Country: US (occurrence: US)
  Receive Date: 20150413
  Receipt Date: 20170828
  Transmission Date: 20171127
  Serious: Yes (Hospitalization)
  Sender: FDA-Public Use
  Company Number: US-PFIZER INC-2015105329

PATIENT
  Age: 66 Year
  Sex: Male
  Weight: 83 kg

DRUGS (11)
  1. CELEBREX [Suspect]
     Active Substance: CELECOXIB
     Indication: NEOPLASM MALIGNANT
     Dosage: 200 MG, 1X/DAY
     Route: 048
     Dates: start: 201211
  2. CELEBREX [Suspect]
     Active Substance: CELECOXIB
     Indication: CANCER PAIN
     Dosage: 400 MG, DAILY [200 AM  200 PM]
     Dates: start: 2012
  3. CELEBREX [Suspect]
     Active Substance: CELECOXIB
     Dosage: 100 MG, 3X/DAY
     Route: 048
     Dates: start: 2013
  4. CELEBREX [Suspect]
     Active Substance: CELECOXIB
     Dosage: 300 MG, 3X/DAY
     Route: 048
  5. NEXIUM [Concomitant]
     Active Substance: ESOMEPRAZOLE MAGNESIUM
     Indication: GASTROOESOPHAGEAL REFLUX DISEASE
     Dosage: 40 MG, 1X/DAY
  6. NEXIUM [Concomitant]
     Active Substance: ESOMEPRAZOLE MAGNESIUM
     Dosage: 40 MG, UNK
     Dates: start: 1996
  7. CELEBREX [Suspect]
     Active Substance: CELECOXIB
     Dosage: 200 MG, UNK
     Route: 048
     Dates: start: 2013
  8. CELEBREX [Suspect]
     Active Substance: CELECOXIB
     Dosage: 200 MG, 2X/DAY
     Route: 048
     Dates: start: 2013
  9. CELEBREX [Suspect]
     Active Substance: CELECOXIB
     Dosage: 200 MG, 2X/DAY
     Route: 048
  10. CELEBREX [Suspect]
     Active Substance: CELECOXIB
     Dosage: 200 MG, 3X/DAY[MORNING, LUNCH, AND BEDTIME]
     Route: 048
  11. CELEBREX [Suspect]
     Active Substance: CELECOXIB
     Indication: ANGIOSARCOMA
     Dosage: 200 MG, 1X/DAY
     Route: 048

REACTIONS (9)
  - Depression [Recovered/Resolved]
  - Chest pain [Unknown]
  - Drug ineffective for unapproved indication [Unknown]
  - Therapeutic response unexpected [Recovered/Resolved]
  - Weight decreased [Not Recovered/Not Resolved]
  - Product use in unapproved indication [Recovered/Resolved]
  - Drug dose omission [Recovered/Resolved]
  - Pre-existing condition improved [Recovered/Resolved]
  - Speech disorder [Unknown]

NARRATIVE: CASE EVENT DATE: 201211
